FAERS Safety Report 24122364 (Version 2)
Quarter: 2025Q1

REPORT INFORMATION
  Report Type: Spontaneous
  Country: CA (occurrence: CA)
  Receive Date: 20240723
  Receipt Date: 20250129
  Transmission Date: 20250409
  Serious: Yes (Other)
  Sender: JOHNSON AND JOHNSON
  Company Number: CA-JNJFOC-20240748917

PATIENT
  Age: 25 Year
  Sex: Female
  Weight: 64 kg

DRUGS (4)
  1. STELARA [Suspect]
     Active Substance: USTEKINUMAB
     Indication: Product used for unknown indication
     Route: 058
  2. DIPHENHYDRAMINE HYDROCHLORIDE [Suspect]
     Active Substance: DIPHENHYDRAMINE HYDROCHLORIDE
     Indication: Product used for unknown indication
     Route: 065
  3. FERRIC DERISOMALTOSE [Suspect]
     Active Substance: FERRIC DERISOMALTOSE
     Indication: Feeling hot
     Route: 050
  4. HYDROCORTISONE [Concomitant]
     Active Substance: HYDROCORTISONE

REACTIONS (7)
  - Blood pressure decreased [Unknown]
  - Blood pressure increased [Unknown]
  - Dyspnoea [Unknown]
  - Feeling hot [Unknown]
  - Infusion related reaction [Unknown]
  - Palpitations [Unknown]
  - Paraesthesia [Unknown]
